FAERS Safety Report 23574111 (Version 1)
Quarter: 2024Q1

REPORT INFORMATION
  Report Type: Spontaneous
  Country: US (occurrence: US)
  Receive Date: 20240228
  Receipt Date: 20240228
  Transmission Date: 20240410
  Serious: No
  Sender: FDA-Public Use
  Company Number: US-BRISTOL-MYERS SQUIBB COMPANY-2024-031851

PATIENT
  Age: 62 Year
  Sex: Male

DRUGS (1)
  1. REVLIMID [Suspect]
     Active Substance: LENALIDOMIDE
     Indication: Plasma cell myeloma
     Route: 048

REACTIONS (7)
  - Muscular weakness [Unknown]
  - Vision blurred [Unknown]
  - Fatigue [Unknown]
  - Muscle atrophy [Unknown]
  - Tinnitus [Unknown]
  - Constipation [Unknown]
  - Blood glucose increased [Unknown]
